FAERS Safety Report 6985000-X (Version None)
Quarter: 2010Q3

REPORT INFORMATION
  Report Type: 
  Country: None (occurrence: None)
  Receive Date: 20100915
  Receipt Date: 20100827
  Transmission Date: 20110219
  Serious: Yes (Hospitalization, Other)
  Sender: FDA-Public Use
  Company Number: PHHO2009JP08419

PATIENT
  Sex: Male
  Weight: 65 kg

DRUGS (16)
  1. BLINDED ALISKIREN ALI+TAB+CVR [Suspect]
     Indication: CARDIOVASCULAR DISORDER
     Dosage: CODE NOT BROKEN
     Route: 048
     Dates: start: 20081205, end: 20090708
  2. BLINDED NO TREATMENT RECEIVED NOMED [Suspect]
     Indication: CARDIOVASCULAR DISORDER
     Dosage: CODE NOT BROKEN
     Route: 048
     Dates: start: 20081205, end: 20090708
  3. BLINDED PLACEBO COMP-PLA+ [Suspect]
     Indication: CARDIOVASCULAR DISORDER
     Dosage: CODE NOT BROKEN
     Route: 048
     Dates: start: 20081205, end: 20090708
  4. FLUVASTATIN [Suspect]
     Indication: CARDIOVASCULAR DISORDER
     Dosage: CODE NOT BROKEN
     Route: 048
     Dates: start: 20081205
  5. MICARDIS [Suspect]
  6. ASPIRIN [Concomitant]
  7. PANALDINE [Concomitant]
  8. LASIX [Concomitant]
  9. CRESTOR [Concomitant]
  10. FAMOTIDINE [Concomitant]
  11. ZETIA [Concomitant]
  12. CLOMIPRAMINE HYDROCHLORIDE [Concomitant]
  13. KINEDAK [Concomitant]
  14. MYSLEE [Concomitant]
  15. SHAKUYAKUKANZOUTOU [Concomitant]
  16. NOVORAPID [Concomitant]

REACTIONS (10)
  - DEHYDRATION [None]
  - DIZZINESS [None]
  - HEADACHE [None]
  - HYPERGLYCAEMIA [None]
  - HYPERKALAEMIA [None]
  - MALAISE [None]
  - MUSCLE SPASMS [None]
  - NAUSEA [None]
  - RENAL IMPAIRMENT [None]
  - VOMITING [None]
